FAERS Safety Report 6196317-3 (Version None)
Quarter: 2009Q2

REPORT INFORMATION
  Report Type: 
  Country: None (occurrence: None)
  Receive Date: 20090520
  Receipt Date: 20090508
  Transmission Date: 20091009
  Serious: Yes (Death, Other)
  Sender: FDA-Public Use
  Company Number: JP-PFIZER INC-2009211488

PATIENT
  Age: 90 Year

DRUGS (1)
  1. UNASYN [Suspect]
     Dosage: 3 G/DAY
     Route: 042
     Dates: start: 20090301

REACTIONS (1)
  - RENAL FAILURE [None]
